FAERS Safety Report 7357732-5 (Version None)
Quarter: 2011Q1

REPORT INFORMATION
  Report Type: 
  Country: None (occurrence: None)
  Receive Date: 20110317
  Receipt Date: 20110308
  Transmission Date: 20110831
  Serious: No
  Sender: FDA-Public Use
  Company Number: US-JNJFOC-20110304696

PATIENT
  Sex: Female

DRUGS (2)
  1. FENTANYL-100 [Suspect]
     Indication: ILL-DEFINED DISORDER
     Route: 065
  2. DURAGESIC-100 [Suspect]
     Indication: ARTHRITIS
     Route: 065

REACTIONS (2)
  - DERMATITIS CONTACT [None]
  - DRUG DOSE OMISSION [None]
